FAERS Safety Report 21509349 (Version 1)
Quarter: 2022Q4

REPORT INFORMATION
  Report Type: Spontaneous
  Country: US (occurrence: None)
  Receive Date: 20221026
  Receipt Date: 20221026
  Transmission Date: 20230113
  Serious: Yes (Hospitalization)
  Sender: FDA-Public Use
  Company Number: None

PATIENT
  Age: 75 Year
  Sex: Male

DRUGS (13)
  1. ERLEADA [Suspect]
     Active Substance: APALUTAMIDE
     Indication: Prostate cancer
     Dosage: FREQUENCY : DAILY;?
     Route: 048
  2. ORGOVYX [Concomitant]
     Active Substance: RELUGOLIX
  3. ATORVASTATIN [Concomitant]
     Active Substance: ATORVASTATIN
  4. DULOXETINE [Concomitant]
     Active Substance: DULOXETINE
  5. ENALAPRIL [Concomitant]
     Active Substance: ENALAPRIL
  6. GABAPENTIN [Concomitant]
     Active Substance: GABAPENTIN
  7. LEVOTHYROXINE [Concomitant]
     Active Substance: LEVOTHYROXINE
  8. METFORMIN [Concomitant]
     Active Substance: METFORMIN HYDROCHLORIDE
  9. METHADONE [Concomitant]
     Active Substance: METHADONE HYDROCHLORIDE
  10. MIRTAZAPINE [Concomitant]
     Active Substance: MIRTAZAPINE
  11. MORPHINE SULFATE [Concomitant]
     Active Substance: MORPHINE SULFATE
  12. ONDANSETRON [Concomitant]
     Active Substance: ONDANSETRON
  13. TAMSULOSIN [Concomitant]
     Active Substance: TAMSULOSIN

REACTIONS (2)
  - Pain [None]
  - Malaise [None]

NARRATIVE: CASE EVENT DATE: 20221025
